FAERS Safety Report 9491098 (Version 1)
Quarter: 2013Q3

REPORT INFORMATION
  Report Type: Spontaneous
  Country: NO (occurrence: NO)
  Receive Date: 20130830
  Receipt Date: 20130830
  Transmission Date: 20140515
  Serious: Yes (Life-Threatening, Hospitalization)
  Sender: FDA-Public Use
  Company Number: NO-JNJFOC-20130815179

PATIENT
  Age: 42 Year
  Sex: Male

DRUGS (5)
  1. REMICADE [Suspect]
     Indication: PSORIATIC ARTHROPATHY
     Route: 042
     Dates: start: 2004, end: 20130624
  2. NEXIUM [Concomitant]
     Route: 048
  3. PREDNISOLON [Concomitant]
     Indication: IRIDOCYCLITIS
     Route: 048
  4. PREDNISOLON [Concomitant]
     Indication: PSORIATIC ARTHROPATHY
     Route: 048
  5. SEROXAT [Concomitant]
     Route: 048

REACTIONS (2)
  - Tuberculosis [Unknown]
  - Sepsis [Unknown]
